FAERS Safety Report 11130080 (Version 1)
Quarter: 2015Q2

REPORT INFORMATION
  Report Type: Spontaneous
  Country: US (occurrence: JP)
  Receive Date: 20150521
  Receipt Date: 20150521
  Transmission Date: 20150821
  Serious: Yes (Hospitalization, Other)
  Sender: FDA-Public Use
  Company Number: US-009507513-1505JPN009121

PATIENT
  Age: 31 Year
  Sex: Female

DRUGS (4)
  1. THIABENDAZOLE [Suspect]
     Active Substance: THIABENDAZOLE
     Dosage: UNK
     Dates: start: 2000
  2. THIABENDAZOLE [Suspect]
     Active Substance: THIABENDAZOLE
     Dosage: MONTHLY
     Route: 048
     Dates: start: 1991
  3. THIABENDAZOLE [Suspect]
     Active Substance: THIABENDAZOLE
     Indication: STRONGYLOIDIASIS
     Dosage: UNK
     Route: 048
     Dates: start: 1991
  4. THIABENDAZOLE [Suspect]
     Active Substance: THIABENDAZOLE
     Dosage: UNK
     Dates: start: 1998

REACTIONS (3)
  - Meningitis bacterial [Recovered/Resolved]
  - Drug ineffective [Unknown]
  - Meningitis bacterial [Recovered/Resolved]

NARRATIVE: CASE EVENT DATE: 2000
